FAERS Safety Report 8358241-7 (Version None)
Quarter: 2012Q2

REPORT INFORMATION
  Report Type: 
  Country: None (occurrence: None)
  Receive Date: 20120514
  Receipt Date: 20120507
  Transmission Date: 20120825
  Serious: Yes (Other)
  Sender: FDA-Public Use
  Company Number: JP-GLAXOSMITHKLINE-B0800878A

PATIENT
  Age: 25 Year
  Sex: Male

DRUGS (2)
  1. PAXIL [Suspect]
     Indication: ADJUSTMENT DISORDER
     Dosage: 10MG PER DAY
     Route: 048
     Dates: start: 20120401
  2. ALPRAZOLAM [Concomitant]
     Indication: ADJUSTMENT DISORDER
     Route: 048
     Dates: start: 20120401

REACTIONS (11)
  - LISTLESS [None]
  - AGGRESSION [None]
  - PHOTOPHOBIA [None]
  - NAUSEA [None]
  - DECREASED APPETITE [None]
  - INITIAL INSOMNIA [None]
  - FATIGUE [None]
  - DEPRESSED MOOD [None]
  - BEDRIDDEN [None]
  - HYPERACUSIS [None]
  - HYPERSENSITIVITY [None]
